FAERS Safety Report 9992535 (Version 1)
Quarter: 2014Q1

REPORT INFORMATION
  Report Type: Spontaneous
  Country: AT (occurrence: AT)
  Receive Date: 20140310
  Receipt Date: 20140310
  Transmission Date: 20141002
  Serious: Yes (Hospitalization)
  Sender: FDA-Public Use
  Company Number: AT-JNJFOC-20140301992

PATIENT
  Age: 49 Year
  Sex: Male

DRUGS (5)
  1. REMICADE [Suspect]
     Indication: PREOPERATIVE CARE
     Route: 042
     Dates: start: 20120912, end: 20131219
  2. VASONIT [Concomitant]
     Route: 065
  3. RIFOLDIN [Concomitant]
     Route: 065
  4. CONCOR [Concomitant]
     Route: 065
  5. DALACIN [Concomitant]
     Route: 065

REACTIONS (6)
  - Confusional state [Recovered/Resolved]
  - Aphasia [Recovered/Resolved]
  - Encephalopathy [Recovered/Resolved]
  - Epilepsy [Recovered/Resolved]
  - Neurological symptom [Recovered/Resolved]
  - Off label use [Unknown]
